FAERS Safety Report 16709649 (Version 1)
Quarter: 2019Q3

REPORT INFORMATION
  Report Type: Spontaneous
  Country: JP (occurrence: JP)
  Receive Date: 20190816
  Receipt Date: 20190816
  Transmission Date: 20191004
  Serious: Yes (Other)
  Sender: FDA-Public Use
  Company Number: JP-GLAXOSMITHKLINE-JP2019GSK145031

PATIENT
  Age: 51 Year
  Sex: Female

DRUGS (3)
  1. LANSOPRAZOLE. [Suspect]
     Active Substance: LANSOPRAZOLE
     Indication: EPIGASTRIC DISCOMFORT
     Dosage: 15 MG, QD
     Dates: start: 200808
  2. ESOMEPRAZOLE. [Suspect]
     Active Substance: ESOMEPRAZOLE MAGNESIUM
     Indication: EPIGASTRIC DISCOMFORT
     Dosage: 20 MG, QD
     Dates: start: 201212
  3. VONOPRAZAN [Suspect]
     Active Substance: VONOPRAZAN
     Indication: EPIGASTRIC DISCOMFORT
     Dosage: 20 MG, QD
     Dates: start: 201603

REACTIONS (6)
  - Gastric polyps [Recovered/Resolved]
  - Dysplasia [Recovered/Resolved]
  - Gastric mucosal lesion [Recovered/Resolved]
  - Adenocarcinoma [Recovered/Resolved]
  - Gastric neoplasm [Recovered/Resolved]
  - Swelling [Recovered/Resolved]
